FAERS Safety Report 10128579 (Version 1)
Quarter: 2014Q2

REPORT INFORMATION
  Report Type: Spontaneous
  Country: FR (occurrence: FR)
  Receive Date: 20140428
  Receipt Date: 20140428
  Transmission Date: 20141212
  Serious: Yes (Other)
  Sender: FDA-Public Use
  Company Number: FR-JNJFOC-20140415415

PATIENT
  Sex: Male

DRUGS (10)
  1. XARELTO [Suspect]
     Indication: EMBOLISM VENOUS
     Route: 048
     Dates: start: 2014
  2. XARELTO [Suspect]
     Indication: DEEP VEIN THROMBOSIS
     Route: 048
     Dates: start: 2014
  3. LOPERAMIDE [Concomitant]
     Route: 065
  4. LASILIX [Concomitant]
     Route: 065
  5. INEXIUM [Concomitant]
     Route: 065
  6. KARDEGIC [Concomitant]
     Route: 065
  7. COVERSYL [Concomitant]
     Route: 065
  8. FEBUXOSTAT [Concomitant]
     Route: 065
  9. SPIRIVA [Concomitant]
     Route: 065
  10. FELODIPINE [Concomitant]
     Route: 065

REACTIONS (3)
  - Dyspnoea [Unknown]
  - Brain natriuretic peptide increased [Unknown]
  - Respiratory disorder [Unknown]
